FAERS Safety Report 19804264 (Version 1)
Quarter: 2021Q3

REPORT INFORMATION
  Report Type: Spontaneous
  Country: US (occurrence: US)
  Receive Date: 20210908
  Receipt Date: 20210908
  Transmission Date: 20211014
  Serious: No
  Sender: FDA-Public Use
  Company Number: US-FARMAPROD-202104-0610

PATIENT
  Age: 49 Year
  Sex: Female

DRUGS (11)
  1. ESTRADIOL. [Concomitant]
     Active Substance: ESTRADIOL
  2. OXERVATE [Suspect]
     Active Substance: CENEGERMIN-BKBJ
     Indication: ULCERATIVE KERATITIS
  3. CYCLOSPORIN [Concomitant]
     Active Substance: CYCLOSPORINE
  4. NORETHINDRONE. [Concomitant]
     Active Substance: NORETHINDRONE
     Route: 048
  5. DUREZOL [Concomitant]
     Active Substance: DIFLUPREDNATE
  6. VENLAFAXIN [Concomitant]
     Active Substance: VENLAFAXINE HYDROCHLORIDE
  7. LORAZEPAM. [Concomitant]
     Active Substance: LORAZEPAM
  8. LAMOTRIGIN [Concomitant]
     Active Substance: LAMOTRIGINE
  9. ATENOLOL/ CHLORTHALIDON [Concomitant]
     Dosage: 50 MG/ 25 MG
     Route: 048
  10. OXERVATE [Suspect]
     Active Substance: CENEGERMIN-BKBJ
     Indication: NEUROTROPHIC KERATOPATHY
     Route: 047
     Dates: start: 20210412
  11. ERYTHROMYCIN. [Concomitant]
     Active Substance: ERYTHROMYCIN
     Route: 047

REACTIONS (9)
  - Eye inflammation [Recovering/Resolving]
  - Off label use [Unknown]
  - Eye swelling [Not Recovered/Not Resolved]
  - Eye irritation [Unknown]
  - Abnormal sensation in eye [Unknown]
  - Dry eye [Not Recovered/Not Resolved]
  - Foreign body sensation in eyes [Unknown]
  - Wrong technique in product usage process [Unknown]
  - Eye pain [Recovering/Resolving]

NARRATIVE: CASE EVENT DATE: 20200910
